FAERS Safety Report 5085788-1 (Version None)
Quarter: 2006Q3

REPORT INFORMATION
  Report Type: 
  Country: None (occurrence: None)
  Receive Date: 20060817
  Receipt Date: 20060808
  Transmission Date: 20061208
  Serious: Yes (Hospitalization, Other)
  Sender: FDA-Public Use
  Company Number: 2006093178

PATIENT
  Age: 67 Year
  Sex: Female
  Weight: 74.8435 kg

DRUGS (7)
  1. GEODON [Suspect]
     Indication: BIPOLAR DISORDER
     Dosage: 120 MG (120 MG, 1 IN 1 D)
     Dates: start: 20060710, end: 20060728
  2. GEODON [Suspect]
     Indication: MANIA
     Dosage: 120 MG (120 MG, 1 IN 1 D)
     Dates: start: 20060710, end: 20060728
  3. PROZAC [Concomitant]
  4. NEURONTIN [Concomitant]
  5. EFFEXOR XR [Concomitant]
  6. VITAMIN C (VITAMIN C) [Concomitant]
  7. CALCIUM  (CALCIUM) [Concomitant]

REACTIONS (6)
  - CARDIAC DISORDER [None]
  - CHEST DISCOMFORT [None]
  - FEELING ABNORMAL [None]
  - HEART RATE IRREGULAR [None]
  - PALPITATIONS [None]
  - PARAESTHESIA [None]
